FAERS Safety Report 5796499-9 (Version None)
Quarter: 2008Q3

REPORT INFORMATION
  Report Type: 
  Country: None (occurrence: None)
  Receive Date: 20080701
  Receipt Date: 20080626
  Transmission Date: 20090109
  Serious: Yes (Other)
  Sender: FDA-Public Use
  Company Number: A0734976A

PATIENT
  Age: 79 Year
  Sex: Female

DRUGS (6)
  1. REQUIP [Suspect]
     Route: 048
     Dates: start: 20080601, end: 20080624
  2. B VITAMIN [Concomitant]
  3. LISINOPRIL [Concomitant]
  4. VESICARE [Concomitant]
  5. PREVACID [Concomitant]
  6. VITAMIN D [Concomitant]

REACTIONS (12)
  - ABDOMINAL PAIN UPPER [None]
  - ASTHENIA [None]
  - CONSTIPATION [None]
  - DIZZINESS [None]
  - DYSGEUSIA [None]
  - FATIGUE [None]
  - HALLUCINATION [None]
  - HEAD DISCOMFORT [None]
  - INSOMNIA [None]
  - NAUSEA [None]
  - SOMNOLENCE [None]
  - VISION BLURRED [None]
